FAERS Safety Report 8884677 (Version 1)
Quarter: 2012Q4

REPORT INFORMATION
  Report Type: 
  Country: US (occurrence: US)
  Receive Date: 20121102
  Receipt Date: 20121102
  Transmission Date: 20130627
  Serious: Yes (Other)
  Sender: FDA-Public Use
  Company Number: US-BAYER-2012-114620

PATIENT
  Age: 68 Year
  Sex: Male
  Weight: 68 kg

DRUGS (3)
  1. ALKA-SELTZER PLUS COLD AND COUGH [Suspect]
     Indication: SINUS CONGESTION
     Dosage: 2 DF, ONCE
     Route: 048
     Dates: start: 20121023, end: 20121023
  2. SUDAFED [Concomitant]
  3. METFORMIN [Concomitant]

REACTIONS (3)
  - Dysuria [Not Recovered/Not Resolved]
  - Dysuria [Not Recovered/Not Resolved]
  - Abdominal pain lower [Not Recovered/Not Resolved]
